FAERS Safety Report 25329744 (Version 2)
Quarter: 2025Q3

REPORT INFORMATION
  Report Type: Report from Study
  Country: CA (occurrence: CA)
  Receive Date: 20250519
  Receipt Date: 20250711
  Transmission Date: 20251021
  Serious: Yes (Other)
  Sender: JOHNSON AND JOHNSON
  Company Number: CA-JNJFOC-20250406803

PATIENT
  Age: 25 Year
  Sex: Female
  Weight: 87.5 kg

DRUGS (3)
  1. REMICADE [Suspect]
     Active Substance: INFLIXIMAB
     Indication: Proctitis ulcerative
     Route: 041
     Dates: start: 20210106
  2. REMICADE [Suspect]
     Active Substance: INFLIXIMAB
     Route: 041
  3. REMICADE [Suspect]
     Active Substance: INFLIXIMAB
     Route: 041
     Dates: start: 20250227

REACTIONS (4)
  - Pneumonia [Recovered/Resolved]
  - Diarrhoea [Recovered/Resolved]
  - Influenza [Recovered/Resolved]
  - Measles [Recovered/Resolved]

NARRATIVE: CASE EVENT DATE: 20250402
